FAERS Safety Report 8968132 (Version 1)
Quarter: 2012Q4

REPORT INFORMATION
  Report Type: Spontaneous
  Country: US (occurrence: None)
  Receive Date: 20121207
  Receipt Date: 20121207
  Transmission Date: 20130627
  Serious: Yes (Life-Threatening, Other)
  Sender: FDA-Public Use
  Company Number: 2012-08660

PATIENT
  Age: 59 Year
  Sex: Male

DRUGS (4)
  1. OXALIPLATIN [Suspect]
     Indication: COLON CANCER RECURRENT
  2. 5-FU [Suspect]
     Indication: COLON CANCER RECURRENT
     Route: 040
  3. 5-FU [Suspect]
     Indication: COLON CANCER RECURRENT
     Route: 042
  4. LEUCOVORIN /00566701/ (FOLINIC ACID) [Concomitant]

REACTIONS (3)
  - Posterior reversible encephalopathy syndrome [None]
  - Renal failure acute [None]
  - Subarachnoid haemorrhage [None]
